FAERS Safety Report 19771827 (Version 7)
Quarter: 2022Q1

REPORT INFORMATION
  Report Type: Spontaneous
  Country: DE (occurrence: DE)
  Receive Date: 20210831
  Receipt Date: 20220111
  Transmission Date: 20220423
  Serious: Yes (Hospitalization, Other)
  Sender: FDA-Public Use
  Company Number: DE-002147023-NVSC2020DE318321

PATIENT
  Age: 65 Year
  Sex: Female
  Weight: 107 kg

DRUGS (16)
  1. VALSARTAN [Suspect]
     Active Substance: VALSARTAN
     Indication: Hypertension
     Dosage: (160MG IN MORNING AND 160 MG IN EVENING)START DATE:19-DEC-2013
     Route: 065
  2. VALSARTAN [Suspect]
     Active Substance: VALSARTAN
     Dosage: 1 DF, BID (MORNING AND EVENING)
     Route: 065
  3. VALSARTAN [Suspect]
     Active Substance: VALSARTAN
     Dosage: 240 MILLIGRAM, QD
     Route: 065
  4. VALSARTAN [Suspect]
     Active Substance: VALSARTAN
     Dosage: 1 DOSAGE FORM, QD
     Route: 065
  5. VERAPAMIL [Suspect]
     Active Substance: VERAPAMIL HYDROCHLORIDE
     Indication: Product used for unknown indication
     Dosage: UNK
     Route: 065
  6. VERAPAMIL [Suspect]
     Active Substance: VERAPAMIL HYDROCHLORIDE
     Dosage: BID, 0.5X 240 MG
     Route: 065
  7. VALSARTAN [Suspect]
     Active Substance: VALSARTAN
     Indication: Hypertension
     Dosage: 320 MILLIGRAM
     Route: 065
     Dates: start: 201507, end: 201512
  8. VALSARTAN [Suspect]
     Active Substance: VALSARTAN
     Dosage: 320 MILLIGRAM
     Route: 065
     Dates: start: 201501, end: 201504
  9. PROVAS [Suspect]
     Active Substance: VALSARTAN
     Indication: Hypertension
     Dosage: UNK
     Route: 065
  10. PROVAS [Suspect]
     Active Substance: VALSARTAN
     Dosage: 1 DF, BID
     Route: 065
     Dates: start: 2003
  11. XYLOCAINE [Concomitant]
     Active Substance: LIDOCAINE HYDROCHLORIDE
     Indication: Endoscopy upper gastrointestinal tract
     Dosage: UNK
     Route: 065
     Dates: start: 202010
  12. XYLOCAINE [Concomitant]
     Active Substance: LIDOCAINE HYDROCHLORIDE
     Dosage: UNK
     Route: 065
     Dates: start: 201709
  13. PROPOFOL [Concomitant]
     Active Substance: PROPOFOL
     Indication: Endoscopy upper gastrointestinal tract
     Dosage: 120 MILLIGRAM
     Route: 042
     Dates: start: 201709
  14. Dormicum [Concomitant]
     Indication: Endoscopy upper gastrointestinal tract
     Dosage: 3 MILLIGRAM/ START DATE:OCT-2020
     Route: 042
  15. IBUPROFEN [Concomitant]
     Active Substance: IBUPROFEN
     Indication: Product used for unknown indication
     Dosage: UNK
     Route: 065
  16. AMLODIPINE [Concomitant]
     Active Substance: AMLODIPINE BESYLATE
     Indication: Product used for unknown indication
     Dosage: BID,1X 5 MG
     Route: 065

REACTIONS (31)
  - Complication associated with device [Recovered/Resolved]
  - Gastric mucosa erythema [Unknown]
  - Helicobacter gastritis [Unknown]
  - Abdominal discomfort [Unknown]
  - Osteochondrosis [Unknown]
  - Ill-defined disorder [Unknown]
  - Basal cell carcinoma [Unknown]
  - Lordosis [Unknown]
  - Spondylitis [Unknown]
  - Chills [Unknown]
  - Arthropathy [Unknown]
  - Microcytic anaemia [Unknown]
  - Emotional distress [Unknown]
  - Limb discomfort [Unknown]
  - Product contamination [Unknown]
  - Quality of life decreased [Unknown]
  - Renal cyst [Unknown]
  - Pain in extremity [Unknown]
  - Myalgia [Unknown]
  - Anxiety [Unknown]
  - Back pain [Unknown]
  - Vomiting [Unknown]
  - Pyrexia [Unknown]
  - Body fat disorder [Unknown]
  - Headache [Unknown]
  - Insomnia [Unknown]
  - Anaemia vitamin B12 deficiency [Unknown]
  - Diverticulum [Unknown]
  - Merycism [Unknown]
  - Iron deficiency [Unknown]
  - Hiatus hernia [Unknown]

NARRATIVE: CASE EVENT DATE: 20171001
